APPROVED DRUG PRODUCT: HYDROCODONE BITARTRATE AND ACETAMINOPHEN
Active Ingredient: ACETAMINOPHEN; HYDROCODONE BITARTRATE
Strength: 500MG;7.5MG
Dosage Form/Route: TABLET;ORAL
Application: A040490 | Product #001
Applicant: ABLE LABORATORIES INC
Approved: May 21, 2003 | RLD: No | RS: No | Type: DISCN